FAERS Safety Report 9437794 (Version 1)
Quarter: 2013Q3

REPORT INFORMATION
  Report Type: Spontaneous
  Country: US (occurrence: US)
  Receive Date: 20130802
  Receipt Date: 20130802
  Transmission Date: 20140515
  Serious: No
  Sender: FDA-Public Use
  Company Number: US-BRISTOL-MYERS SQUIBB COMPANY-17452988

PATIENT
  Age: 85 Year
  Sex: Female
  Weight: 62.58 kg

DRUGS (1)
  1. COUMADIN [Suspect]
     Indication: CEREBROVASCULAR ACCIDENT
     Dosage: ONCE DAILY?LAST DOSE:05MAR2013

REACTIONS (5)
  - Rectal haemorrhage [Unknown]
  - Dizziness [Unknown]
  - Contusion [Unknown]
  - Diarrhoea [Not Recovered/Not Resolved]
  - Vomiting [Unknown]
